FAERS Safety Report 19360664 (Version 1)
Quarter: 2021Q2

REPORT INFORMATION
  Report Type: Report from Study
  Country: None (occurrence: US)
  Receive Date: 20210602
  Receipt Date: 20210602
  Transmission Date: 20210717
  Serious: No
  Sender: FDA-Public Use
  Company Number: US-MDD US OPERATIONS-MDD202009-001916

PATIENT
  Age: 85 Year
  Sex: Male
  Weight: 79.37 kg

DRUGS (6)
  1. CARBIDOPA LEVODOPA [Concomitant]
     Active Substance: CARBIDOPA\LEVODOPA
     Dosage: NOT PROVIDED
  2. APOKYN [Suspect]
     Active Substance: APOMORPHINE HYDROCHLORIDE
     Indication: PARKINSON^S DISEASE
     Route: 058
     Dates: start: 20200921
  3. FLOMAX [Concomitant]
     Active Substance: TAMSULOSIN HYDROCHLORIDE
     Dosage: NOT PROVIDED
  4. CEPHALEXIN. [Concomitant]
     Active Substance: CEPHALEXIN
  5. APOKYN [Suspect]
     Active Substance: APOMORPHINE HYDROCHLORIDE
     Dosage: UP TO 0.1 ML
     Route: 058
  6. GOCOVRI [Concomitant]
     Active Substance: AMANTADINE
     Dosage: NOT PROVIDED

REACTIONS (7)
  - Somnolence [Recovered/Resolved]
  - Yawning [Recovered/Resolved]
  - Dizziness [Recovered/Resolved]
  - Rhinorrhoea [Recovered/Resolved]
  - Therapy non-responder [Unknown]
  - Upper-airway cough syndrome [Recovered/Resolved]
  - Adverse event [Unknown]

NARRATIVE: CASE EVENT DATE: 2020
